FAERS Safety Report 16344713 (Version 8)
Quarter: 2020Q2

REPORT INFORMATION
  Report Type: Report from Study
  Country: BR (occurrence: BR)
  Receive Date: 20190522
  Receipt Date: 20200613
  Transmission Date: 20200713
  Serious: Yes (Other)
  Sender: FDA-Public Use
  Company Number: PHHY2019BR116537

PATIENT
  Age: 80 Year
  Sex: Female
  Weight: 53 kg

DRUGS (12)
  1. CHLOROQUINE. [Suspect]
     Active Substance: CHLOROQUINE
     Indication: ARTHRITIS
     Dosage: UNK
     Route: 048
  2. SELOZOK [Concomitant]
     Active Substance: METOPROLOL SUCCINATE
     Indication: ADJUVANT THERAPY
     Dosage: 50 MG, QD
     Route: 048
  3. COSENTYX [Suspect]
     Active Substance: SECUKINUMAB
     Indication: PSORIATIC ARTHROPATHY
     Dosage: 300 MG, QMO
     Route: 058
     Dates: start: 20190312
  4. CHLORTALIDONE [Concomitant]
     Active Substance: CHLORTHALIDONE
     Indication: HYPERTENSION
     Dosage: 12.5 MG, QD
     Route: 048
  5. COSENTYX [Suspect]
     Active Substance: SECUKINUMAB
     Dosage: 300 MG, QMO
     Route: 058
     Dates: start: 201904
  6. CALCIUM [Concomitant]
     Active Substance: CALCIUM
     Indication: BONE DISORDER
     Dosage: 2 DF, QD (AFTER LUNCH)
     Route: 048
  7. ASPIRIN. [Concomitant]
     Active Substance: ASPIRIN
     Indication: ADJUVANT THERAPY
     Dosage: 1 DF, QD
     Route: 048
  8. ADALIMUMAB [Suspect]
     Active Substance: ADALIMUMAB
     Indication: PSORIATIC ARTHROPATHY
     Dosage: 1 DF, UNK (ONCE EVERY 15 DAYS)
     Route: 058
  9. PREDNISONE. [Concomitant]
     Active Substance: PREDNISONE
     Indication: PSORIATIC ARTHROPATHY
     Dosage: 1 DF, QD
     Route: 048
  10. COSENTYX [Suspect]
     Active Substance: SECUKINUMAB
     Dosage: 300 MG, QMO
     Route: 058
     Dates: start: 20190509
  11. CALCIUM [Suspect]
     Active Substance: CALCIUM
     Indication: BONE DISORDER
     Dosage: UNK, QD
     Route: 048
  12. HIGROTON [Suspect]
     Active Substance: CHLORTHALIDONE
     Indication: HYPERTENSION
     Dosage: 12.5 MG, QD
     Route: 048

REACTIONS (27)
  - Diarrhoea [Recovered/Resolved]
  - Abdominal pain upper [Not Recovered/Not Resolved]
  - Chest pain [Unknown]
  - Gastrointestinal infection [Recovered/Resolved]
  - Abdominal pain [Recovered/Resolved]
  - Palpitations [Recovered/Resolved]
  - Generalised oedema [Unknown]
  - Peripheral swelling [Unknown]
  - Drug ineffective [Unknown]
  - Nail psoriasis [Not Recovered/Not Resolved]
  - Weight decreased [Recovered/Resolved]
  - Blindness [Recovered/Resolved]
  - Malaise [Not Recovered/Not Resolved]
  - Drug intolerance [Unknown]
  - Abdominal discomfort [Unknown]
  - Dyspepsia [Not Recovered/Not Resolved]
  - Dysentery [Recovered/Resolved]
  - Metabolic disorder [Unknown]
  - Arthralgia [Not Recovered/Not Resolved]
  - Sinusitis [Unknown]
  - Blood pressure decreased [Unknown]
  - Dysstasia [Unknown]
  - Dizziness [Unknown]
  - Pneumonia [Unknown]
  - Cough [Unknown]
  - Feeling abnormal [Unknown]
  - Rhinitis [Unknown]

NARRATIVE: CASE EVENT DATE: 201903
